FAERS Safety Report 11211292 (Version 1)
Quarter: 2015Q2

REPORT INFORMATION
  Report Type: Report from Study
  Country: CH (occurrence: CH)
  Receive Date: 20150623
  Receipt Date: 20150623
  Transmission Date: 20150821
  Serious: Yes (Hospitalization)
  Sender: FDA-Public Use
  Company Number: CH-ROCHE-1591978

PATIENT
  Age: 49 Year
  Sex: Female
  Weight: 63 kg

DRUGS (7)
  1. UROMITEXAN [Suspect]
     Active Substance: MESNA
     Indication: ACUTE LEUKAEMIA
     Route: 042
     Dates: start: 20100609, end: 20100611
  2. VINCRISTINE [Suspect]
     Active Substance: VINCRISTINE
     Indication: ACUTE LEUKAEMIA
     Route: 042
     Dates: start: 20100609, end: 20100616
  3. FILGRASTIM [Suspect]
     Active Substance: FILGRASTIM
     Indication: ACUTE LEUKAEMIA
     Route: 042
     Dates: start: 20100612, end: 20100621
  4. DAUNORUBICIN [Suspect]
     Active Substance: DAUNORUBICIN
     Indication: ACUTE LEUKAEMIA
     Route: 042
     Dates: start: 20100609, end: 20100610
  5. RITUXIMAB [Suspect]
     Active Substance: RITUXIMAB
     Indication: ACUTE LEUKAEMIA
     Route: 042
     Dates: start: 20100626
  6. CYCLOPHOSPHAMIDE. [Suspect]
     Active Substance: CYCLOPHOSPHAMIDE
     Indication: ACUTE LEUKAEMIA
     Route: 042
     Dates: start: 20100609, end: 20100611
  7. L-ASPARAGINASE [Suspect]
     Active Substance: ASPARAGINASE
     Indication: ACUTE LEUKAEMIA
     Route: 042
     Dates: start: 20100614, end: 20100622

REACTIONS (1)
  - Karnofsky scale worsened [Recovered/Resolved]

NARRATIVE: CASE EVENT DATE: 20100611
